FAERS Safety Report 5106984-0 (Version None)
Quarter: 2006Q3

REPORT INFORMATION
  Report Type: 
  Country: None (occurrence: None)
  Receive Date: 20060913
  Receipt Date: 20060830
  Transmission Date: 20061208
  Serious: Yes (Congenital Anomaly)
  Sender: FDA-Public Use
  Company Number: 2006S1000209

PATIENT
  Sex: Female
  Weight: 1.2 kg

DRUGS (2)
  1. SORIATANE [Suspect]
     Dosage: UNK; TRPL
     Route: 064
  2. METHOXSALEN [Suspect]
     Dosage: UNK; TRPL
     Route: 064
     Dates: start: 20050501, end: 20050101

REACTIONS (5)
  - ABORTION INDUCED [None]
  - DRUG EXPOSURE DURING PREGNANCY [None]
  - HYDROCEPHALUS [None]
  - SPINA BIFIDA [None]
  - TALIPES [None]
